FAERS Safety Report 8617623-6 (Version None)
Quarter: 2012Q3

REPORT INFORMATION
  Report Type: 
  Country: None (occurrence: None)
  Receive Date: 20120824
  Receipt Date: 20120319
  Transmission Date: 20120928
  Serious: No
  Sender: FDA-Public Use
  Company Number: US-ASTRAZENECA-2011SE73900

PATIENT
  Age: 61 Year
  Sex: Female

DRUGS (3)
  1. NEXIUM [Suspect]
     Dosage: ONCE PER DAY
     Route: 048
  2. SYMBICORT [Suspect]
     Route: 055
  3. NEXIUM [Suspect]
     Dosage: TWO PER DAY
     Route: 048

REACTIONS (3)
  - DRUG PRESCRIBING ERROR [None]
  - CHRONIC OBSTRUCTIVE PULMONARY DISEASE [None]
  - DRUG INEFFECTIVE [None]
